FAERS Safety Report 9784384 (Version 2)
Quarter: 2014Q1

REPORT INFORMATION
  Report Type: Spontaneous
  Country: US (occurrence: US)
  Receive Date: 20131226
  Receipt Date: 20140224
  Transmission Date: 20141002
  Serious: No
  Sender: FDA-Public Use
  Company Number: US-BIOGENIDEC-2013BI121602

PATIENT
  Age: 56 Year
  Sex: Male

DRUGS (13)
  1. TECFIDERA [Suspect]
     Indication: RELAPSING-REMITTING MULTIPLE SCLEROSIS
     Dates: start: 20131112
  2. TECFIDERA [Suspect]
     Indication: RELAPSING-REMITTING MULTIPLE SCLEROSIS
     Route: 048
  3. ADDERALL XR [Concomitant]
  4. ASPIRIN EC [Concomitant]
  5. BACLOFEN [Concomitant]
  6. CENTRUM SILVER [Concomitant]
  7. DEPAKOTE [Concomitant]
  8. GLYCOLAX [Concomitant]
  9. PAXIL [Concomitant]
  10. RAPAFLO [Concomitant]
  11. SEROQUEL [Concomitant]
  12. VERAPAMIL HCL [Concomitant]
  13. VITAMIN D3 [Concomitant]

REACTIONS (1)
  - Rhinorrhoea [Not Recovered/Not Resolved]
